FAERS Safety Report 9245193 (Version 1)
Quarter: 2013Q2

REPORT INFORMATION
  Report Type: Spontaneous
  Country: US (occurrence: US)
  Receive Date: 20130422
  Receipt Date: 20130422
  Transmission Date: 20140414
  Serious: Yes (Hospitalization, Other)
  Sender: FDA-Public Use
  Company Number: US-BRISTOL-MYERS SQUIBB COMPANY-18777789

PATIENT
  Age: 66 Year
  Sex: Female

DRUGS (3)
  1. METFORMIN HCL [Suspect]
     Indication: TYPE 2 DIABETES MELLITUS
  2. PLAVIX [Suspect]
  3. ASPIRIN [Suspect]

REACTIONS (5)
  - Renal artery stenosis [Unknown]
  - Renal impairment [Unknown]
  - Blood pressure increased [Unknown]
  - Diarrhoea [Unknown]
  - Gastrointestinal disorder [Unknown]
